FAERS Safety Report 13745625 (Version 2)
Quarter: 2017Q3

REPORT INFORMATION
  Report Type: Report from Study
  Country: US (occurrence: US)
  Receive Date: 20170712
  Receipt Date: 20170725
  Transmission Date: 20171127
  Serious: Yes (Death, Hospitalization, Other)
  Sender: FDA-Public Use
  Company Number: US-GILEAD-2017-0282844

PATIENT
  Age: 17 Year
  Sex: Female
  Weight: 27.8 kg

DRUGS (10)
  1. AMIODARONE [Concomitant]
     Active Substance: AMIODARONE
  2. FUROSEMIDE. [Concomitant]
     Active Substance: FUROSEMIDE
  3. TADALAFIL [Concomitant]
     Active Substance: TADALAFIL
  4. AMBRISENTAN [Suspect]
     Active Substance: AMBRISENTAN
     Indication: PULMONARY ARTERIAL HYPERTENSION
     Dosage: 10 MG, QD
     Route: 048
     Dates: start: 20120625
  5. ENALAPRIL [Concomitant]
     Active Substance: ENALAPRIL
  6. WARFARIN [Concomitant]
     Active Substance: WARFARIN
  7. DIGOXIN. [Concomitant]
     Active Substance: DIGOXIN
  8. MELATONIN [Concomitant]
     Active Substance: MELATONIN
  9. SPIRONOLACTONE. [Concomitant]
     Active Substance: SPIRONOLACTONE
  10. COUMADIN [Concomitant]
     Active Substance: WARFARIN SODIUM

REACTIONS (2)
  - Cardiac failure [Fatal]
  - Off label use [Unknown]

NARRATIVE: CASE EVENT DATE: 20120625
